FAERS Safety Report 10713059 (Version 1)
Quarter: 2015Q1

REPORT INFORMATION
  Report Type: Spontaneous
  Country: US (occurrence: None)
  Receive Date: 20150114
  Receipt Date: 20150114
  Transmission Date: 20150721
  Serious: Yes (Other)
  Sender: FDA-Public Use
  Company Number: None

PATIENT
  Age: 34 Year
  Sex: Male
  Weight: 136.53 kg

DRUGS (2)
  1. CYMBALTA [Concomitant]
     Active Substance: DULOXETINE HYDROCHLORIDE
  2. ZIPRASIDONE [Suspect]
     Active Substance: ZIPRASIDONE
     Indication: BIPOLAR DISORDER
     Dosage: ZIPRASADONE 20MG PO AM, 80MG PO HS
     Route: 048
     Dates: start: 20141009, end: 20150108

REACTIONS (2)
  - Incontinence [None]
  - Therapy cessation [None]

NARRATIVE: CASE EVENT DATE: 20150108
